FAERS Safety Report 9316195 (Version 1)
Quarter: 2013Q2

REPORT INFORMATION
  Report Type: Spontaneous
  Country: US (occurrence: US)
  Receive Date: 20130530
  Receipt Date: 20130530
  Transmission Date: 20140414
  Serious: No
  Sender: FDA-Public Use
  Company Number: PHEH2013US011632

PATIENT
  Sex: 0

DRUGS (2)
  1. TASIGNA [Suspect]
  2. PAXIL [Interacting]

REACTIONS (3)
  - Speech disorder [Unknown]
  - Drug interaction [Unknown]
  - Dizziness [Unknown]
